FAERS Safety Report 10835583 (Version 1)
Quarter: 2015Q1

REPORT INFORMATION
  Report Type: Report from Study
  Country: US (occurrence: US)
  Receive Date: 20150219
  Receipt Date: 20150219
  Transmission Date: 20150721
  Serious: No
  Sender: FDA-Public Use
  Company Number: US-ABBVIE-14P-163-1204329-00

PATIENT
  Age: 55 Year
  Sex: Male
  Weight: 95.34 kg

DRUGS (6)
  1. CELEBREX [Concomitant]
     Active Substance: CELECOXIB
     Indication: RHEUMATOID ARTHRITIS
  2. METOPROLOL [Concomitant]
     Active Substance: METOPROLOL
     Indication: HYPERTENSION
  3. FENOFIBRATE. [Concomitant]
     Active Substance: FENOFIBRATE
     Indication: BLOOD CHOLESTEROL INCREASED
  4. HUMIRA [Suspect]
     Active Substance: ADALIMUMAB
     Indication: RHEUMATOID ARTHRITIS
     Route: 058
     Dates: start: 201208, end: 201211
  5. HUMIRA [Suspect]
     Active Substance: ADALIMUMAB
     Dates: start: 201401
  6. PRAVASTATIN [Concomitant]
     Active Substance: PRAVASTATIN\PRAVASTATIN SODIUM
     Indication: BLOOD CHOLESTEROL INCREASED

REACTIONS (6)
  - Abscess limb [Recovered/Resolved]
  - Staphylococcal infection [Recovered/Resolved]
  - Influenza [Recovered/Resolved]
  - Subcutaneous abscess [Recovered/Resolved]
  - Pneumonia [Recovered/Resolved]
  - Staphylococcal infection [Recovered/Resolved]

NARRATIVE: CASE EVENT DATE: 201212
